FAERS Safety Report 23515664 (Version 1)
Quarter: 2024Q1

REPORT INFORMATION
  Report Type: Spontaneous
  Country: BR (occurrence: BR)
  Receive Date: 20240213
  Receipt Date: 20240213
  Transmission Date: 20240409
  Serious: Yes (Other)
  Sender: FDA-Public Use
  Company Number: BR-BAYER-2024A016671

PATIENT
  Age: 80 Year
  Sex: Female

DRUGS (1)
  1. EYLEA [Suspect]
     Active Substance: AFLIBERCEPT
     Indication: Macular degeneration
     Dosage: UNK, 40 MG/ML
     Dates: start: 20240126, end: 20240126

REACTIONS (4)
  - Retinal oedema [Unknown]
  - Vision blurred [Unknown]
  - Wrong technique in product usage process [Unknown]
  - Suspected counterfeit product [Unknown]
